FAERS Safety Report 5569301-8 (Version None)
Quarter: 2007Q4

REPORT INFORMATION
  Report Type: 
  Country: None (occurrence: None)
  Receive Date: 20071220
  Receipt Date: 20071017
  Transmission Date: 20080405
  Serious: No
  Sender: FDA-Public Use
  Company Number: A0688250A

PATIENT
  Age: 64 Year
  Sex: Male

DRUGS (18)
  1. AVODART [Suspect]
     Indication: BENIGN PROSTATIC HYPERPLASIA
     Dosage: .5MG PER DAY
     Route: 048
     Dates: start: 20061101
  2. ADVAIR DISKUS 100/50 [Concomitant]
  3. ALBUTEROL [Concomitant]
  4. ASPIRIN [Concomitant]
  5. COREG [Concomitant]
  6. DIOVAN [Concomitant]
  7. IPRATROPIUM BROMIDE [Concomitant]
  8. LASIX [Concomitant]
  9. LIPITOR [Concomitant]
  10. ISOSORBIDE DINITRATE [Concomitant]
  11. NASONEX [Concomitant]
  12. NTG SPRAY [Concomitant]
  13. PERCOCET [Concomitant]
  14. PLAVIX [Concomitant]
  15. SPIRIVA [Concomitant]
  16. ZOLOFT [Concomitant]
  17. SPIRONOLACTONE [Concomitant]
  18. NEXIUM [Concomitant]

REACTIONS (2)
  - BREAST ENLARGEMENT [None]
  - BREAST PAIN [None]
